FAERS Safety Report 6711366-1 (Version None)
Quarter: 2010Q2

REPORT INFORMATION
  Report Type: 
  Country: None (occurrence: None)
  Receive Date: 20100505
  Receipt Date: 20100422
  Transmission Date: 20101027
  Serious: Yes (Hospitalization, Other)
  Sender: FDA-Public Use
  Company Number: BR-JNJFOC-20100500681

PATIENT
  Sex: Male

DRUGS (2)
  1. TRAMAL [Suspect]
     Indication: PAIN
     Route: 065
  2. DIPYRONE [Concomitant]
     Dosage: ONE AS NECESSARY

REACTIONS (4)
  - ASTHENIA [None]
  - CARDIAC FAILURE [None]
  - HAEMATEMESIS [None]
  - HAEMATOCHEZIA [None]
